FAERS Safety Report 5354288-3 (Version None)
Quarter: 2007Q2

REPORT INFORMATION
  Report Type: 
  Country: None (occurrence: None)
  Receive Date: 20070612
  Receipt Date: 20070531
  Transmission Date: 20071010
  Serious: No
  Sender: FDA-Public Use
  Company Number: US-ASTRAZENECA-2006UW08356

PATIENT
  Age: 20052 Day
  Sex: Female
  Weight: 96.4 kg

DRUGS (3)
  1. SEROQUEL [Suspect]
     Route: 048
     Dates: end: 20060401
  2. GEODON [Concomitant]
  3. ZYPREXA [Concomitant]

REACTIONS (1)
  - DIABETES MELLITUS [None]
